FAERS Safety Report 11036790 (Version 1)
Quarter: 2015Q2

REPORT INFORMATION
  Report Type: Spontaneous
  Country: FI (occurrence: FI)
  Receive Date: 20150416
  Receipt Date: 20150416
  Transmission Date: 20150821
  Serious: Yes (Other)
  Sender: FDA-Public Use
  Company Number: FI-AMGEN-FINSP2015035572

PATIENT
  Age: 80 Year
  Sex: Female

DRUGS (17)
  1. MUCOVIN [Concomitant]
     Dosage: UNK UNK, QHS
     Route: 048
  2. TENOX                              /00393701/ [Concomitant]
     Dosage: UNK UNK, QHS
     Route: 048
  3. IMOVANE [Concomitant]
     Active Substance: ZOPICLONE
     Dosage: UNK UNK, QHS
     Route: 048
  4. PRIMPERAN [Concomitant]
     Active Substance: METOCLOPRAMIDE HYDROCHLORIDE
     Dosage: UNK UNK, QHS
     Route: 048
  5. XGEVA [Suspect]
     Active Substance: DENOSUMAB
     Indication: PRODUCT USED FOR UNKNOWN INDICATION
     Dosage: 120 MG, QMO
     Route: 058
     Dates: start: 20140818
  6. LISIPRIL [Concomitant]
     Dosage: 5 MG, QD
     Route: 048
  7. ATROVENT [Concomitant]
     Active Substance: IPRATROPIUM BROMIDE
     Dosage: UNK UNK, QHS
     Route: 055
  8. LEVOLAC [Concomitant]
     Active Substance: LACTULOSE
     Route: 048
  9. TAMOFEN [Concomitant]
     Active Substance: TAMOXIFEN CITRATE
     Dosage: 20 MG, QD
     Route: 048
  10. BRICANYL [Concomitant]
     Active Substance: TERBUTALINE SULFATE
     Route: 055
  11. OXANEST [Concomitant]
     Active Substance: OXYCODONE HYDROCHLORIDE
     Dosage: UNK UNK, QHS
  12. OMEPRAZOL RATIOPHARM [Concomitant]
     Dosage: 20 MG, QD
     Route: 048
  13. OPAMOX [Concomitant]
     Dosage: UNK UNK, QHS
     Route: 048
  14. PANACOD [Concomitant]
     Active Substance: ACETAMINOPHEN\CODEINE PHOSPHATE
     Dosage: UNK UNK, QHS
     Route: 048
  15. CALCICHEW D3 FORTE [Concomitant]
     Active Substance: CALCIUM\CHOLECALCIFEROL
     Dosage: 2 DF, QD
     Route: 048
  16. TRAMADIN [Concomitant]
     Dosage: 50 MG, QD
     Route: 048
  17. FURESIS [Concomitant]
     Active Substance: FUROSEMIDE
     Dosage: UNK UNK, QHS
     Route: 048

REACTIONS (2)
  - Osteonecrosis of jaw [Not Recovered/Not Resolved]
  - Osteomyelitis [Not Recovered/Not Resolved]

NARRATIVE: CASE EVENT DATE: 20150320
